FAERS Safety Report 23959093 (Version 1)
Quarter: 2024Q2

REPORT INFORMATION
  Report Type: Spontaneous
  Country: US (occurrence: None)
  Receive Date: 20240611
  Receipt Date: 20240611
  Transmission Date: 20240716
  Serious: Yes (Other)
  Sender: FDA-Public Use
  Company Number: 2024A132412

PATIENT

DRUGS (1)
  1. NEXIUM [Suspect]
     Active Substance: ESOMEPRAZOLE MAGNESIUM
     Route: 048

REACTIONS (15)
  - Cardiac failure [Unknown]
  - Respiratory failure [Unknown]
  - Renal failure [Unknown]
  - Gastric ulcer [Unknown]
  - Pulmonary thrombosis [Unknown]
  - Anaemia [Unknown]
  - Thrombosis [Unknown]
  - Cardiac disorder [Unknown]
  - Pain [Unknown]
  - Peripheral swelling [Unknown]
  - Illness [Unknown]
  - Back pain [Unknown]
  - Muscle strain [Unknown]
  - Renal pain [Unknown]
  - Coronavirus test [Unknown]
